FAERS Safety Report 4547261-6 (Version None)
Quarter: 2005Q1

REPORT INFORMATION
  Report Type: 
  Country: None (occurrence: None)
  Receive Date: 20050107
  Receipt Date: 20041022
  Transmission Date: 20050727
  Serious: Yes (Life-Threatening, Disabling)
  Sender: FDA-Public Use
  Company Number: US-MERCK-0410USA03544

PATIENT
  Sex: Female

DRUGS (5)
  1. VIOXX [Suspect]
     Indication: PAIN MANAGEMENT
     Route: 048
     Dates: start: 20010810, end: 20010817
  2. VIOXX [Suspect]
     Indication: INTERVERTEBRAL DISC DEGENERATION
     Route: 048
     Dates: start: 20010810, end: 20010817
  3. NAPROXEN [Concomitant]
     Route: 065
  4. PERCOCET [Concomitant]
     Route: 065
  5. TYLENOL [Concomitant]
     Route: 065

REACTIONS (10)
  - ABDOMINAL PAIN UPPER [None]
  - ASTHMA [None]
  - DIZZINESS [None]
  - EAR PAIN [None]
  - GASTROOESOPHAGEAL REFLUX DISEASE [None]
  - HAEMATOCHEZIA [None]
  - JOINT SWELLING [None]
  - PAIN [None]
  - SWELLING FACE [None]
  - URINARY TRACT INFECTION [None]
